FAERS Safety Report 9135437 (Version 2)
Quarter: 2013Q1

REPORT INFORMATION
  Report Type: Spontaneous
  Country: US (occurrence: US)
  Receive Date: 20130304
  Receipt Date: 20130308
  Transmission Date: 20140127
  Serious: Yes (Hospitalization, Disabling, Other)
  Sender: FDA-Public Use
  Company Number: US-009507513-1107USA03583

PATIENT
  Sex: Female
  Weight: 59.42 kg

DRUGS (4)
  1. FOSAMAX [Suspect]
     Indication: OSTEOPOROSIS
     Dosage: 20 MG, QD
     Route: 048
     Dates: start: 1997
  2. FOSAMAX [Suspect]
     Dosage: 10 MG, QD
     Route: 048
     Dates: start: 199803
  3. FOSAMAX [Suspect]
     Dosage: 70 MG, QW
     Route: 048
     Dates: start: 2004
  4. ALENDRONATE SODIUM [Suspect]
     Dosage: 70 MG, QW
     Route: 048
     Dates: start: 20030311

REACTIONS (107)
  - Open reduction of fracture [Not Recovered/Not Resolved]
  - Jaw disorder [Not Recovered/Not Resolved]
  - Arthropathy [Unknown]
  - Oral infection [Unknown]
  - Mitral valve disease [Unknown]
  - Cardiovascular disorder [Unknown]
  - Hip fracture [Unknown]
  - Coronary artery disease [Unknown]
  - Appendix disorder [Unknown]
  - Tendon disorder [Unknown]
  - Cerebrovascular accident [Unknown]
  - Sick sinus syndrome [Unknown]
  - Anaemia [Recovering/Resolving]
  - Renal failure acute [Recovering/Resolving]
  - Hyperkalaemia [Recovering/Resolving]
  - Cardiac failure congestive [Unknown]
  - Osteonecrosis of jaw [Not Recovered/Not Resolved]
  - Diarrhoea [Recovering/Resolving]
  - Tooth disorder [Unknown]
  - Blood cholesterol increased [Unknown]
  - Rheumatoid arthritis [Unknown]
  - Oral infection [Not Recovered/Not Resolved]
  - Gingival disorder [Unknown]
  - Fistula discharge [Not Recovered/Not Resolved]
  - Dental caries [Unknown]
  - Impaired healing [Unknown]
  - Weight decreased [Unknown]
  - Tooth disorder [Unknown]
  - Inappropriate schedule of drug administration [Unknown]
  - Cardiac failure congestive [Unknown]
  - Cardiac murmur [Unknown]
  - Hyperlipidaemia [Unknown]
  - Cataract [Unknown]
  - Cataract [Unknown]
  - Upper limb fracture [Unknown]
  - Drug intolerance [Unknown]
  - Tooth disorder [Unknown]
  - Infection [Unknown]
  - Tympanic membrane perforation [Unknown]
  - Wound necrosis [Unknown]
  - Jaw fracture [Unknown]
  - Bone loss [Unknown]
  - Arthritis [Unknown]
  - Gout [Unknown]
  - Haemorrhagic anaemia [Unknown]
  - Amnesia [Unknown]
  - Atrial fibrillation [Unknown]
  - Tooth infection [Unknown]
  - Oral cavity fistula [Unknown]
  - Wound dehiscence [Unknown]
  - Trismus [Unknown]
  - Tooth abscess [Unknown]
  - Tooth disorder [Unknown]
  - Tooth disorder [Unknown]
  - Dyspnoea [Unknown]
  - Chest pain [Unknown]
  - Upper limb fracture [Unknown]
  - Ovarian disorder [Unknown]
  - Tonsillar disorder [Unknown]
  - Hypertension [Unknown]
  - Palpitations [Unknown]
  - Pleural effusion [Unknown]
  - Congestive cardiomyopathy [Unknown]
  - Mitral valve incompetence [Unknown]
  - Cardiac failure congestive [Unknown]
  - Arteriosclerosis [Unknown]
  - Atrioventricular block complete [Unknown]
  - Cellulitis [Unknown]
  - Animal bite [Unknown]
  - Skin lesion [Not Recovered/Not Resolved]
  - Road traffic accident [Unknown]
  - Muscle strain [Unknown]
  - Tooth fracture [Not Recovered/Not Resolved]
  - Infected dermal cyst [Unknown]
  - Infected dermal cyst [Recovered/Resolved]
  - Rhinitis [Unknown]
  - Pneumonia [Unknown]
  - Asthma [Unknown]
  - Tooth infection [Not Recovered/Not Resolved]
  - Ulcer [Unknown]
  - Adverse drug reaction [Unknown]
  - Hiatus hernia [Unknown]
  - Bronchitis [Unknown]
  - Subcutaneous abscess [Unknown]
  - Staphylococcal infection [Not Recovered/Not Resolved]
  - Gastrointestinal haemorrhage [Unknown]
  - Diverticulum intestinal [Unknown]
  - Acquired oesophageal web [Unknown]
  - Fistula [Recovered/Resolved]
  - Hypertension [Unknown]
  - Dental caries [Unknown]
  - Pulpitis dental [Unknown]
  - Dental necrosis [Unknown]
  - Periodontitis [Unknown]
  - Periodontitis [Not Recovered/Not Resolved]
  - Tooth extraction [Unknown]
  - Tooth disorder [Unknown]
  - Osteomyelitis [Unknown]
  - Gastrooesophageal reflux disease [Unknown]
  - Diarrhoea [Unknown]
  - Nausea [Unknown]
  - Drug hypersensitivity [Unknown]
  - Epigastric discomfort [Unknown]
  - Nausea [Unknown]
  - Oesophageal stenosis [Unknown]
  - Diarrhoea [Unknown]
  - Neck pain [Unknown]
